FAERS Safety Report 6591247-7 (Version None)
Quarter: 2010Q1

REPORT INFORMATION
  Report Type: 
  Country: None (occurrence: None)
  Receive Date: 20100219
  Receipt Date: 20100218
  Transmission Date: 20100710
  Serious: Yes (Death, Life-Threatening, Hospitalization, Other)
  Sender: FDA-Public Use
  Company Number: PHHO2009DE10210

PATIENT
  Sex: Male
  Weight: 85 kg

DRUGS (7)
  1. AFINITOR [Suspect]
     Indication: METASTATIC RENAL CELL CARCINOMA
     Dosage: 10 MG/DAY
     Route: 048
     Dates: start: 20090709
  2. ASPIRIN [Concomitant]
  3. CARDOPAX [Concomitant]
  4. PANTOZOL [Concomitant]
  5. HYDROCORTISONE [Concomitant]
  6. ASTOMIN [Concomitant]
  7. ALLOPURINOL [Concomitant]

REACTIONS (2)
  - ANAEMIA [None]
  - GENERAL PHYSICAL HEALTH DETERIORATION [None]
